FAERS Safety Report 23427459 (Version 1)
Quarter: 2024Q1

REPORT INFORMATION
  Report Type: Spontaneous
  Country: FR (occurrence: FR)
  Receive Date: 20240122
  Receipt Date: 20240122
  Transmission Date: 20240410
  Serious: Yes (Hospitalization)
  Sender: FDA-Public Use
  Company Number: None

PATIENT
  Age: 59 Year
  Sex: Male
  Weight: 100 kg

DRUGS (11)
  1. HYDROCHLOROTHIAZIDE\TELMISARTAN [Suspect]
     Active Substance: HYDROCHLOROTHIAZIDE\TELMISARTAN
     Indication: Hypertension
     Route: 048
  2. METFORMINE BIOGARAN 1000 mg, comprim? pellicul? [Concomitant]
     Indication: Type 2 diabetes mellitus
     Route: 048
     Dates: end: 20220716
  3. FENOFIBRATE [Concomitant]
     Active Substance: FENOFIBRATE
     Indication: Hypercholesterolaemia
     Route: 048
  4. GLICLAZIDE [Concomitant]
     Active Substance: GLICLAZIDE
     Indication: Type 2 diabetes mellitus
     Route: 048
  5. LEVOFLOXACIN [Concomitant]
     Active Substance: LEVOFLOXACIN
     Indication: Urinary tract infection
     Route: 048
  6. OZEMPIC 1 mg, solution injectable en stylo pr?rempli [Concomitant]
     Indication: Type 2 diabetes mellitus
     Route: 058
  7. ESOMEPRAZOLE [Concomitant]
     Active Substance: ESOMEPRAZOLE
     Indication: Product used for unknown indication
     Route: 048
  8. ZOPICLONE [Concomitant]
     Active Substance: ZOPICLONE
     Indication: Sleep disorder
     Route: 048
  9. TADALAFIL TEVA 10 mg, comprim? pellicul? [Concomitant]
     Indication: Product used for unknown indication
     Route: 048
  10. BROMAZEPAM ARROW 6 mg, comprim? quadris?cable [Concomitant]
     Indication: Sleep disorder
     Dosage: 1/4 ? 1/2 LE MATIN ET 1/2 LE SOIR
     Route: 048
  11. BISOPROLOL FUMARATE [Concomitant]
     Active Substance: BISOPROLOL FUMARATE
     Indication: Hypertension
     Route: 048

REACTIONS (3)
  - Lactic acidosis [Recovering/Resolving]
  - Drug level above therapeutic [Recovering/Resolving]
  - Potentiating drug interaction [Recovered/Resolved]

NARRATIVE: CASE EVENT DATE: 20220716
